FAERS Safety Report 4944301-7 (Version None)
Quarter: 2006Q1

REPORT INFORMATION
  Report Type: 
  Country: None (occurrence: None)
  Receive Date: 20060315
  Receipt Date: 20060307
  Transmission Date: 20060701
  Serious: Yes (Hospitalization)
  Sender: FDA-Public Use
  Company Number: CLAV2006-0002

PATIENT
  Age: 10 Year
  Sex: Male

DRUGS (3)
  1. CLAVURION [Suspect]
     Route: 048
     Dates: start: 20050523, end: 20050530
  2. IMOVAX [Suspect]
     Indication: RABIES
     Dosage: 1ML PER DAY
     Route: 030
     Dates: start: 20050523, end: 20050530
  3. IMOGAM RABIES [Suspect]
     Indication: RABIES
     Dosage: 4ML PER DAY
     Route: 030
     Dates: start: 20050523

REACTIONS (10)
  - ARTHRALGIA [None]
  - BRONCHOSPASM [None]
  - COUGH [None]
  - DYSPNOEA [None]
  - ERYTHEMA [None]
  - PHARYNGITIS [None]
  - PHARYNGOLARYNGEAL PAIN [None]
  - PYREXIA [None]
  - SERUM SICKNESS [None]
  - URTICARIA [None]
